FAERS Safety Report 14454280 (Version 1)
Quarter: 2018Q1

REPORT INFORMATION
  Report Type: Spontaneous
  Country: US (occurrence: US)
  Receive Date: 20180129
  Receipt Date: 20180129
  Transmission Date: 20180509
  Serious: No
  Sender: FDA-Public Use
  Company Number: US-PERRIGO-17US000322

PATIENT
  Age: 69 Year
  Sex: Male
  Weight: 72.56 kg

DRUGS (2)
  1. TRETINOIN. [Suspect]
     Active Substance: TRETINOIN
     Indication: ACCIDENTAL EXPOSURE TO PRODUCT
     Dosage: UNKNOWN, UNKNOWN
     Route: 061
     Dates: start: 201701
  2. TRETINOIN. [Suspect]
     Active Substance: TRETINOIN
     Dosage: ONE APPLICATION, SINGLE
     Route: 061
     Dates: start: 20170105, end: 20170105

REACTIONS (4)
  - Application site irritation [Recovering/Resolving]
  - Application site pain [Recovering/Resolving]
  - Accidental exposure to product [Recovered/Resolved]
  - Drug administered to patient of inappropriate age [Not Recovered/Not Resolved]

NARRATIVE: CASE EVENT DATE: 201701
